FAERS Safety Report 6955505-6 (Version None)
Quarter: 2010Q3

REPORT INFORMATION
  Report Type: 
  Country: None (occurrence: None)
  Receive Date: 20100830
  Receipt Date: 20100826
  Transmission Date: 20110219
  Serious: Yes (Hospitalization, Other)
  Sender: FDA-Public Use
  Company Number: IT-BRISTOL-MYERS SQUIBB COMPANY-15256720

PATIENT
  Age: 72 Year
  Sex: Male

DRUGS (2)
  1. COUMADIN [Suspect]
     Indication: CEREBROVASCULAR ACCIDENT
     Dates: start: 20050801, end: 20100812
  2. SIVASTIN [Concomitant]
     Dosage: FORMULATION:FILM COATED  ORAL TABS
     Route: 048

REACTIONS (3)
  - FALL [None]
  - HAEMORRHAGE [None]
  - PELVIC FRACTURE [None]
